FAERS Safety Report 8434736-2 (Version None)
Quarter: 2012Q2

REPORT INFORMATION
  Report Type: 
  Country: None (occurrence: None)
  Receive Date: 20120614
  Receipt Date: 20120605
  Transmission Date: 20120825
  Serious: Yes (Hospitalization)
  Sender: FDA-Public Use
  Company Number: FR-ELI_LILLY_AND_COMPANY-FR201206001215

PATIENT
  Age: 81 Year
  Sex: Female

DRUGS (5)
  1. HYZAAR [Concomitant]
  2. DILTIAZEM HCL [Concomitant]
     Dosage: 200 MG, UNK
     Route: 048
  3. PRAVASTATIN [Concomitant]
     Dosage: 20 MG, UNK
  4. GEMZAR [Suspect]
     Indication: PANCREATIC CARCINOMA
     Dosage: UNK
     Route: 042
     Dates: start: 20120228, end: 20120228
  5. SINTROM [Concomitant]

REACTIONS (11)
  - CARDIAC FAILURE [None]
  - RENAL FAILURE ACUTE [None]
  - CULTURE URINE POSITIVE [None]
  - RESPIRATORY DISTRESS [None]
  - PANCREATIC DUCT DILATATION [None]
  - CARDIAC ANEURYSM [None]
  - INTERNATIONAL NORMALISED RATIO INCREASED [None]
  - HYPERTENSION [None]
  - CAPILLARY LEAK SYNDROME [None]
  - CHOLESTASIS [None]
  - OEDEMA [None]
